FAERS Safety Report 4755926-6 (Version None)
Quarter: 2005Q3

REPORT INFORMATION
  Report Type: 
  Country: None (occurrence: None)
  Receive Date: 20050830
  Receipt Date: 20050823
  Transmission Date: 20060218
  Serious: Yes (Hospitalization)
  Sender: FDA-Public Use
  Company Number: US-JNJFOC-20050800972

PATIENT
  Sex: Male
  Weight: 51.71 kg

DRUGS (22)
  1. REMICADE [Suspect]
     Route: 042
  2. REMICADE [Suspect]
     Route: 042
  3. REMICADE [Suspect]
     Route: 042
  4. REMICADE [Suspect]
     Route: 042
  5. REMICADE [Suspect]
     Indication: RHEUMATOID ARTHRITIS
     Route: 042
  6. IMURAN [Suspect]
     Indication: RHEUMATOID ARTHRITIS
  7. METHOTREXATE [Suspect]
     Indication: RHEUMATOID ARTHRITIS
  8. TENORMIN [Concomitant]
     Dates: start: 20040701
  9. PLAVIX [Concomitant]
     Dates: start: 20040701
  10. ASPIRIN [Concomitant]
     Dates: start: 20040701
  11. LASIX [Concomitant]
     Dates: start: 20040701
  12. LIPITOR [Concomitant]
     Dates: start: 20040701
  13. ZANTAC [Concomitant]
     Dates: start: 20040701
  14. AMBIEN [Concomitant]
     Dates: start: 20040701
  15. FOSAMAX [Concomitant]
     Dates: start: 20040701
  16. CALCIUM D [Concomitant]
     Dates: start: 20040701
  17. CALCIUM D [Concomitant]
     Dates: start: 20040701
  18. CALCIUM D [Concomitant]
     Dates: start: 20040701
  19. OCUVITE [Concomitant]
     Dates: start: 20040701
  20. OCUVITE [Concomitant]
     Dates: start: 20040701
  21. OCUVITE [Concomitant]
     Dates: start: 20040701
  22. PREDNISONE [Concomitant]
     Dosage: TO BE TAPERED OFF    DISCONTINUED AT THE END OF 2004

REACTIONS (5)
  - ALVEOLITIS FIBROSING [None]
  - DRUG TOXICITY [None]
  - HAEMOGLOBIN DECREASED [None]
  - LOCALISED INFECTION [None]
  - RESPIRATORY FAILURE [None]
